FAERS Safety Report 22081780 (Version 7)
Quarter: 2024Q4

REPORT INFORMATION
  Report Type: Spontaneous
  Country: FR (occurrence: FR)
  Receive Date: 20230310
  Receipt Date: 20241211
  Transmission Date: 20250115
  Serious: Yes (Other)
  Sender: ROCHE
  Company Number: FR-ROCHE-2952394

PATIENT
  Age: 19 Year
  Sex: Male
  Weight: 48 kg

DRUGS (1)
  1. ALECENSA [Suspect]
     Active Substance: ALECTINIB HYDROCHLORIDE
     Indication: Non-Hodgkin^s lymphoma
     Dosage: RENEWABLE ONCE (TO BE TAKEN WITH FOOD)
     Route: 065

REACTIONS (4)
  - Off label use [Unknown]
  - Dysgeusia [Unknown]
  - Hyperbilirubinaemia [Unknown]
  - Photosensitivity reaction [Unknown]
